FAERS Safety Report 17611524 (Version 1)
Quarter: 2020Q2

REPORT INFORMATION
  Report Type: Report from Study
  Country: US (occurrence: US)
  Receive Date: 20200401
  Receipt Date: 20200401
  Transmission Date: 20200713
  Serious: No
  Sender: FDA-Public Use
  Company Number: US-RETROPHIN, INC.-2019RTN00046

PATIENT
  Sex: Female

DRUGS (2)
  1. CHOLIC ACID (INVESTIGATIONAL DRUG) [Suspect]
     Active Substance: CHOLIC ACID
     Indication: XANTHOMATOSIS
     Dosage: 750 MG, 1X/DAY
     Dates: start: 20140204, end: 201510
  2. CHOLBAM [Suspect]
     Active Substance: CHOLIC ACID
     Indication: XANTHOMATOSIS
     Dosage: 750 MG, 1X/DAY
     Route: 048
     Dates: start: 201510

REACTIONS (1)
  - Irritable bowel syndrome [Unknown]

NARRATIVE: CASE EVENT DATE: 2019
